FAERS Safety Report 23788679 (Version 1)
Quarter: 2024Q2

REPORT INFORMATION
  Report Type: Report from Study
  Country: AT (occurrence: AT)
  Receive Date: 20240426
  Receipt Date: 20240426
  Transmission Date: 20240716
  Serious: Yes (Hospitalization, Other)
  Sender: FDA-Public Use
  Company Number: AT-ABBVIE-5732075

PATIENT
  Age: 54 Year
  Sex: Female

DRUGS (2)
  1. RINVOQ [Suspect]
     Active Substance: UPADACITINIB
     Indication: Psoriasis
     Route: 048
     Dates: start: 202203, end: 202403
  2. ENALAPRIL MALEATE\LERCANIDIPINE HYDROCHLORIDE [Concomitant]
     Active Substance: ENALAPRIL MALEATE\LERCANIDIPINE HYDROCHLORIDE
     Indication: Hypertension

REACTIONS (6)
  - Cholelithiasis [Recovered/Resolved]
  - Musculoskeletal chest pain [Recovered/Resolved]
  - Abdominal pain upper [Not Recovered/Not Resolved]
  - Arthralgia [Recovered/Resolved]
  - Gastric perforation [Recovering/Resolving]
  - Procedural pain [Recovering/Resolving]

NARRATIVE: CASE EVENT DATE: 20240101
